FAERS Safety Report 4717613-X (Version None)
Quarter: 2005Q3

REPORT INFORMATION
  Report Type: 
  Country: None (occurrence: None)
  Receive Date: 20050712
  Receipt Date: 20050404
  Transmission Date: 20060218
  Serious: No
  Sender: FDA-Public Use
  Company Number: 2005S1000064

PATIENT
  Sex: Female

DRUGS (1)
  1. CUBICIN [Suspect]
     Indication: ARTHRITIS INFECTIVE
     Dosage: 4 MG/KG;UNKNOWN;IV
     Route: 042

REACTIONS (2)
  - BLOOD CREATINE PHOSPHOKINASE INCREASED [None]
  - PAIN IN EXTREMITY [None]
